FAERS Safety Report 5664138-3 (Version None)
Quarter: 2008Q1

REPORT INFORMATION
  Report Type: 
  Country: None (occurrence: None)
  Receive Date: 20080312
  Receipt Date: 20080227
  Transmission Date: 20080703
  Serious: Yes (Hospitalization)
  Sender: FDA-Public Use
  Company Number: 231994J08USA

PATIENT
  Age: 67 Year
  Sex: Female
  Weight: 68.0396 kg

DRUGS (9)
  1. REBIF [Suspect]
     Indication: MULTIPLE SCLEROSIS
     Dosage: 44 MCG, 3 IN 1 WEEKS, SUBCUTANEOUS
     Route: 058
     Dates: start: 20060823
  2. PLASMA [Suspect]
     Indication: MULTIPLE SCLEROSIS
     Dosage: 1 IN 2 DAYS
     Dates: start: 20070905, end: 20070921
  3. ZANAFLEX [Concomitant]
  4. SYNTHROID [Concomitant]
  5. PREVACID [Concomitant]
  6. DIOVAN [Concomitant]
  7. TOPROL-XL [Concomitant]
  8. DETROL LA [Concomitant]
  9. ACTONEL [Concomitant]

REACTIONS (5)
  - ABASIA [None]
  - AKINESIA [None]
  - BLADDER DISORDER [None]
  - DEEP VEIN THROMBOSIS [None]
  - OEDEMA PERIPHERAL [None]
